FAERS Safety Report 8433576 (Version 2)
Quarter: 2015Q1

REPORT INFORMATION
  Report Type: Report from Study
  Country: FR (occurrence: FR)
  Receive Date: 20120229
  Receipt Date: 20150119
  Transmission Date: 20150721
  Serious: Yes (Hospitalization)
  Sender: FDA-Public Use
  Company Number: FR-PFIZER INC-2012047605

PATIENT
  Age: 57 Year
  Sex: Female

DRUGS (11)
  1. NOXAFIL [Concomitant]
     Active Substance: POSACONAZOLE
     Dosage: 800 MG, DAILY
     Route: 048
     Dates: start: 20090401
  2. ARACYTINE [Suspect]
     Active Substance: CYTARABINE
     Dosage: 200 MG, DAILY
     Route: 042
     Dates: start: 20090506
  3. LYRICA [Concomitant]
     Active Substance: PREGABALIN
     Dosage: 100 MG, DAILY
     Route: 048
     Dates: start: 20090409
  4. MOPRAL [Concomitant]
     Active Substance: OMEPRAZOLE SODIUM
     Dosage: 20 MG, DAILY
     Route: 048
     Dates: start: 20090205
  5. ARACYTINE [Suspect]
     Active Substance: CYTARABINE
     Indication: ACUTE MYELOID LEUKAEMIA
     Dosage: 200 MG/M2, DAILY FROM DAY 1 TO DAY 7
     Route: 041
     Dates: start: 20090126, end: 20090202
  6. MAGNE-B6 [Concomitant]
     Active Substance: MAGNESIUM LACTATE\PYRIDOXINE HYDROCHLORIDE
     Dosage: 2 DF, DAILY
     Route: 048
     Dates: start: 20090409
  7. ARACYTINE [Suspect]
     Active Substance: CYTARABINE
     Dosage: 200 MG, DAILY
     Route: 042
     Dates: start: 20090407
  8. DAUNORUBICIN [Suspect]
     Active Substance: DAUNORUBICIN
     Indication: ACUTE MYELOID LEUKAEMIA
     Dosage: 60 MG/M2, DAILY, FROM DAY 1 TO DAY 3
     Route: 041
     Dates: start: 20090126, end: 20090128
  9. DAUNORUBICIN [Suspect]
     Active Substance: DAUNORUBICIN
     Dosage: 75 MG, DAILY
     Route: 042
     Dates: start: 20090407
  10. DAUNORUBICIN [Suspect]
     Active Substance: DAUNORUBICIN
     Dosage: 75 MG, DAILY
     Route: 042
     Dates: start: 20090506
  11. GEMTUZUMAB OZOGAMICIN [Suspect]
     Active Substance: GEMTUZUMAB OZOGAMICIN
     Indication: ACUTE MYELOID LEUKAEMIA
     Dosage: 3 MG/M2, 3 TIMES PER CYCLE, ON DAY 1, 4, AND 7
     Route: 041
     Dates: start: 20090126, end: 20090202

REACTIONS (1)
  - Neuropathy peripheral [Recovering/Resolving]

NARRATIVE: CASE EVENT DATE: 20090419
